FAERS Safety Report 8800376 (Version 2)
Quarter: 2012Q4

REPORT INFORMATION
  Report Type: 
  Country: US (occurrence: US)
  Receive Date: 20120921
  Receipt Date: 20120927
  Transmission Date: 20130627
  Serious: Yes (Other)
  Sender: FDA-Public Use
  Company Number: CHPA2012US019828

PATIENT
  Age: 87 Year
  Sex: Female

DRUGS (3)
  1. BENEFIBER [Suspect]
     Dosage: 2 TSP, TID
     Route: 048
     Dates: end: 20120903
  2. DRUG THERAPY NOS [Concomitant]
     Dosage: UNK
     Dates: start: 201205
  3. ENSURE [Concomitant]

REACTIONS (15)
  - Macular degeneration [Not Recovered/Not Resolved]
  - Cataract [Not Recovered/Not Resolved]
  - Visual acuity reduced [Not Recovered/Not Resolved]
  - Tongue disorder [Not Recovered/Not Resolved]
  - Choking [Recovered/Resolved]
  - Nausea [Recovered/Resolved]
  - Ageusia [Not Recovered/Not Resolved]
  - Poor quality sleep [Recovered/Resolved]
  - Diarrhoea [Recovered/Resolved]
  - Influenza like illness [Recovered/Resolved]
  - Off label use [Unknown]
  - Abdominal pain [Recovered/Resolved]
  - Therapeutic response unexpected [Unknown]
  - Wrong technique in drug usage process [Unknown]
  - Self-medication [None]
